FAERS Safety Report 18341718 (Version 1)
Quarter: 2020Q4

REPORT INFORMATION
  Report Type: Spontaneous
  Country: FR (occurrence: FR)
  Receive Date: 20201005
  Receipt Date: 20201005
  Transmission Date: 20210113
  Serious: Yes (Other)
  Sender: FDA-Public Use
  Company Number: FR-ROCHE-2688478

PATIENT
  Age: 60 Year
  Sex: Male
  Weight: 57.5 kg

DRUGS (8)
  1. SUFENTANIL [Suspect]
     Active Substance: SUFENTANIL
     Indication: SEDATION
     Route: 042
     Dates: start: 20200915, end: 20200916
  2. PRODILANTIN [Suspect]
     Active Substance: FOSPHENYTOIN SODIUM
     Indication: TONIC CLONIC MOVEMENTS
     Route: 042
     Dates: start: 20200915, end: 20200915
  3. CISATRACURIUM. [Suspect]
     Active Substance: CISATRACURIUM
     Indication: PRODUCT USED FOR UNKNOWN INDICATION
     Route: 042
     Dates: start: 20200915, end: 20200915
  4. NORADRENALINE [Suspect]
     Active Substance: NOREPINEPHRINE
     Indication: HAEMODYNAMIC INSTABILITY
     Route: 042
     Dates: start: 20200915, end: 20200916
  5. ETOMIDATE LIPURO [Suspect]
     Active Substance: ETOMIDATE
     Indication: ENDOTRACHEAL INTUBATION
     Route: 042
     Dates: start: 20200915, end: 20200915
  6. RIVOTRIL [Suspect]
     Active Substance: CLONAZEPAM
     Indication: ENDOTRACHEAL INTUBATION
     Route: 065
     Dates: start: 20200915, end: 20200915
  7. MIDAZOLAM. [Suspect]
     Active Substance: MIDAZOLAM
     Indication: SEDATION
     Route: 042
     Dates: start: 20200915, end: 20200916
  8. ROCURONIUM [Suspect]
     Active Substance: ROCURONIUM BROMIDE
     Indication: ENDOTRACHEAL INTUBATION
     Route: 042
     Dates: start: 20200915, end: 20200915

REACTIONS (4)
  - Electrocardiogram QRS complex prolonged [Recovered/Resolved]
  - Electrocardiogram P wave abnormal [Recovered/Resolved]
  - Defect conduction intraventricular [Recovered/Resolved]
  - Conduction disorder [Recovered/Resolved]

NARRATIVE: CASE EVENT DATE: 20200916
